FAERS Safety Report 5898678-9 (Version None)
Quarter: 2008Q3

REPORT INFORMATION
  Report Type: 
  Country: None (occurrence: None)
  Receive Date: 20080925
  Receipt Date: 20080402
  Transmission Date: 20090109
  Serious: No
  Sender: FDA-Public Use
  Company Number: A0718969A

PATIENT
  Age: 68 Year
  Sex: Female

DRUGS (7)
  1. WELLBUTRIN XL [Suspect]
     Indication: DEPRESSION
     Dosage: 150MG PER DAY
     Route: 048
     Dates: start: 20071129
  2. CARDIZEM [Concomitant]
  3. TEVETEN [Concomitant]
  4. SYNTHROID [Concomitant]
  5. FOSAMAX [Concomitant]
  6. ASPIRIN [Concomitant]
  7. GLUCOSAMINE [Concomitant]

REACTIONS (1)
  - CONJUNCTIVAL HAEMORRHAGE [None]
